FAERS Safety Report 8250581-5 (Version None)
Quarter: 2012Q2

REPORT INFORMATION
  Report Type: 
  Country: None (occurrence: None)
  Receive Date: 20120402
  Receipt Date: 20120402
  Transmission Date: 20120825
  Serious: Yes (Other)
  Sender: FDA-Public Use
  Company Number: None

PATIENT
  Age: 52 Year
  Sex: Female
  Weight: 68.038 kg

DRUGS (1)
  1. COPAXONE [Suspect]
     Dosage: 20.0 MG

REACTIONS (2)
  - NAUSEA [None]
  - MALAISE [None]
